FAERS Safety Report 8425928-7 (Version None)
Quarter: 2012Q2

REPORT INFORMATION
  Report Type: 
  Country: None (occurrence: None)
  Receive Date: 20120611
  Receipt Date: 20120531
  Transmission Date: 20120825
  Serious: Yes (Other)
  Sender: FDA-Public Use
  Company Number: JP-VERTEX PHARMACEUTICALS INC.-AE-2012-008341

PATIENT
  Age: 71 Year
  Sex: Female

DRUGS (6)
  1. TELAVIC (TELAPREVIR) [Suspect]
     Indication: HEPATITIS C
     Route: 048
     Dates: start: 20120404, end: 20120410
  2. RIBAVIRIN [Concomitant]
     Indication: HEPATITIS C
     Route: 048
     Dates: start: 20120404, end: 20120410
  3. PEGINTERFERON ALFA-2B [Concomitant]
     Indication: HEPATITIS C
     Route: 051
     Dates: start: 20120404, end: 20120410
  4. PRAVASTATIN SODIUM [Concomitant]
     Route: 048
  5. CONIEL [Concomitant]
     Route: 048
  6. URSO 250 [Concomitant]
     Route: 048

REACTIONS (1)
  - GASTRIC ULCER [None]
